FAERS Safety Report 4955969-3 (Version None)
Quarter: 2006Q1

REPORT INFORMATION
  Report Type: 
  Country: None (occurrence: None)
  Receive Date: 20060328
  Receipt Date: 20051117
  Transmission Date: 20060701
  Serious: Yes (Death, Hospitalization)
  Sender: FDA-Public Use
  Company Number: US-MERCK-0511USA03406

PATIENT
  Age: 73 Year
  Sex: Male
  Weight: 73 kg

DRUGS (10)
  1. VIOXX [Suspect]
     Indication: SPINAL COLUMN STENOSIS
     Route: 048
     Dates: start: 20000101, end: 20031120
  2. SYNTHROID [Concomitant]
     Indication: THYROID DISORDER
     Route: 048
  3. LORAZEPAM [Concomitant]
     Indication: ANXIETY
     Route: 048
  4. CODEINE [Concomitant]
     Indication: HYPOTONIA
     Route: 048
  5. ZOLOFT [Concomitant]
     Indication: ANXIETY
     Route: 048
  6. DOXAZOSIN MESYLATE [Concomitant]
     Indication: INSOMNIA
     Route: 048
  7. CYCLOBENZAPRINE HYDROCHLORIDE [Concomitant]
     Route: 048
  8. ASPIRIN [Concomitant]
     Indication: PROPHYLAXIS
     Route: 048
     Dates: start: 19990501, end: 20031101
  9. LIPITOR [Concomitant]
     Indication: VASCULAR BYPASS GRAFT
     Route: 048
     Dates: start: 19990501, end: 20031101
  10. TYLENOL (CAPLET) [Concomitant]
     Indication: BACK PAIN
     Route: 048
     Dates: start: 19980601, end: 20031101

REACTIONS (8)
  - ACUTE MYOCARDIAL INFARCTION [None]
  - ARTERIOSCLEROSIS [None]
  - ARTHRALGIA [None]
  - ARTHROPATHY [None]
  - CARDIOVASCULAR DISORDER [None]
  - CORONARY ARTERY DISEASE [None]
  - MULTI-ORGAN DISORDER [None]
  - OSTEOARTHRITIS [None]
